FAERS Safety Report 5575039-3 (Version None)
Quarter: 2007Q4

REPORT INFORMATION
  Report Type: 
  Country: None (occurrence: None)
  Receive Date: 20071221
  Receipt Date: 20071221
  Transmission Date: 20080405
  Serious: No
  Sender: FDA-Public Use
  Company Number: None

PATIENT
  Sex: Female
  Weight: 84 kg

DRUGS (3)
  1. CYCLOPHOSPHAMIDE [Suspect]
     Dosage: 1100 MG
  2. NEUPOGEN [Concomitant]
  3. TAXOTERE [Concomitant]

REACTIONS (6)
  - ASTHENIA [None]
  - DRUG TOXICITY [None]
  - NAUSEA [None]
  - NEUROPATHY [None]
  - SINUS TACHYCARDIA [None]
  - VOMITING [None]
